FAERS Safety Report 7076085-3 (Version None)
Quarter: 2010Q4

REPORT INFORMATION
  Report Type: 
  Country: None (occurrence: None)
  Receive Date: 20101101
  Receipt Date: 20101022
  Transmission Date: 20110411
  Serious: No
  Sender: FDA-Public Use
  Company Number: 2007BI002689

PATIENT
  Age: 59 Year
  Sex: Female

DRUGS (9)
  1. TYSABRI [Suspect]
     Indication: MULTIPLE SCLEROSIS
     Route: 042
     Dates: start: 20061207, end: 20070131
  2. TYSABRI [Suspect]
     Route: 042
     Dates: start: 20070307
  3. SERZONE [Concomitant]
  4. NEURONTIN [Concomitant]
  5. XANAX [Concomitant]
  6. LIPITOR [Concomitant]
  7. METFORMIN [Concomitant]
  8. BUMEX [Concomitant]
  9. BACLOFEN [Concomitant]

REACTIONS (4)
  - CLOSTRIDIAL INFECTION [None]
  - DIARRHOEA [None]
  - MEMORY IMPAIRMENT [None]
  - WEIGHT DECREASED [None]
